FAERS Safety Report 12190107 (Version 1)
Quarter: 2016Q1

REPORT INFORMATION
  Report Type: Spontaneous
  Country: US (occurrence: US)
  Receive Date: 20160318
  Receipt Date: 20160318
  Transmission Date: 20160526
  Serious: No
  Sender: FDA-Public Use
  Company Number: US-BAYER-2016-049857

PATIENT
  Age: 89 Year
  Sex: Female
  Weight: 58.96 kg

DRUGS (4)
  1. CENTRUM [VIT C,VIT H,B5,B12,D2,FE+,B3,B6,RETINOL,B2,B1 HCL,VIT E] [Concomitant]
  2. MIRALAX [Suspect]
     Active Substance: POLYETHYLENE GLYCOL 3350
     Indication: CONSTIPATION
     Dosage: 1 DF, QD
     Route: 048
     Dates: start: 2011
  3. COENZYME Q10 [Concomitant]
     Active Substance: UBIDECARENONE
  4. BAYER ASPIRIN REGIMEN CHEWABLE LOW DOSE ASPIRIN ORANGE [Concomitant]
     Active Substance: ASPIRIN
     Indication: ISCHAEMIC HEART DISEASE PROPHYLAXIS

REACTIONS (2)
  - Product use issue [None]
  - Drug ineffective [None]

NARRATIVE: CASE EVENT DATE: 2011
